FAERS Safety Report 23181450 (Version 1)
Quarter: 2023Q4

REPORT INFORMATION
  Report Type: Spontaneous
  Country: US (occurrence: None)
  Receive Date: 20231113
  Receipt Date: 20231113
  Transmission Date: 20240110
  Serious: Yes (Other)
  Sender: FDA-Public Use
  Company Number: None

PATIENT
  Age: 47 Year
  Sex: Female
  Weight: 43.97 kg

DRUGS (3)
  1. RITUXAN [Suspect]
     Active Substance: RITUXIMAB
     Indication: Immunosuppression
     Dosage: OTHER FREQUENCY : EVERY SIX DAYS;?
     Dates: start: 20210119, end: 20210208
  2. RITUXAN [Suspect]
     Active Substance: RITUXIMAB
     Indication: Von Willebrand^s factor antigen increased
  3. RITUXAN [Suspect]
     Active Substance: RITUXIMAB
     Indication: Thrombotic thrombocytopenic purpura

REACTIONS (4)
  - Alopecia [None]
  - Alopecia [None]
  - Self esteem decreased [None]
  - Depressed mood [None]

NARRATIVE: CASE EVENT DATE: 20210119
